FAERS Safety Report 16858293 (Version 2)
Quarter: 2019Q3

REPORT INFORMATION
  Report Type: Spontaneous
  Country: AU (occurrence: AU)
  Receive Date: 20190926
  Receipt Date: 20190929
  Transmission Date: 20191005
  Serious: Yes (Other)
  Sender: FDA-Public Use
  Company Number: PHHY2019AU222674

PATIENT
  Age: 63 Year
  Sex: Female

DRUGS (3)
  1. DENOSUMAB [Suspect]
     Active Substance: DENOSUMAB
     Indication: BREAST CANCER METASTATIC
     Dosage: 120 MG, Q3MO
     Route: 065
  2. RIBOCICLIB. [Suspect]
     Active Substance: RIBOCICLIB
     Indication: BREAST CANCER METASTATIC
     Dosage: 400 MG, QD, (3/4 W)
     Route: 065
     Dates: start: 201709
  3. LETROZOLE. [Suspect]
     Active Substance: LETROZOLE
     Indication: BREAST CANCER METASTATIC
     Dosage: 2.5 MG, QD
     Route: 065

REACTIONS (14)
  - Neutropenia [Unknown]
  - Oropharyngeal pain [Recovering/Resolving]
  - Hepatic mass [Unknown]
  - Metastases to bone [Unknown]
  - Functional gastrointestinal disorder [Unknown]
  - Abdominal distension [Unknown]
  - Diarrhoea [Unknown]
  - Pleural effusion [Recovered/Resolved]
  - Ascites [Unknown]
  - Rectal tenesmus [Unknown]
  - Helicobacter gastritis [Unknown]
  - Intestinal metastasis [Unknown]
  - Metastases to peritoneum [Unknown]
  - Constipation [Unknown]

NARRATIVE: CASE EVENT DATE: 20180404
